FAERS Safety Report 9708938 (Version 1)
Quarter: 2013Q4

REPORT INFORMATION
  Report Type: Spontaneous
  Country: DE (occurrence: None)
  Receive Date: 20131122
  Receipt Date: 20131122
  Transmission Date: 20140711
  Serious: Yes (Other)
  Sender: FDA-Public Use
  Company Number: 1311-1488

PATIENT
  Age: 77 Year
  Sex: Male

DRUGS (1)
  1. EYLEA (AFLIBERCEPT) (INJECTION) (AFLIBERCEPT) [Suspect]
     Indication: AGE-RELATED MACULAR DEGENERATION
     Dosage: 1 IN 5 WK, INTRAOCULAR
     Route: 031
     Dates: start: 2013

REACTIONS (5)
  - Cataract [None]
  - Visual acuity reduced [None]
  - Eyelid disorder [None]
  - Visual field defect [None]
  - Poor peripheral circulation [None]
